FAERS Safety Report 22679228 (Version 10)
Quarter: 2023Q4

REPORT INFORMATION
  Report Type: Report from Study
  Country: ES (occurrence: ES)
  Receive Date: 20230706
  Receipt Date: 20231111
  Transmission Date: 20240109
  Serious: Yes (Life-Threatening, Hospitalization)
  Sender: FDA-Public Use
  Company Number: ES-AMGEN-ESPCT2023116358

PATIENT
  Age: 21 Year
  Sex: Male
  Weight: 69.9 kg

DRUGS (21)
  1. BLINATUMOMAB [Suspect]
     Active Substance: BLINATUMOMAB
     Indication: Acute lymphocytic leukaemia
     Dosage: 250 MICROGRAM
     Route: 058
     Dates: start: 20230626
  2. BLINATUMOMAB [Suspect]
     Active Substance: BLINATUMOMAB
     Dosage: 0.25 UNK
     Route: 058
  3. BLINATUMOMAB [Suspect]
     Active Substance: BLINATUMOMAB
     Dosage: UNK
     Route: 058
     Dates: start: 20230706
  4. ACYCLOVIR [Concomitant]
     Active Substance: ACYCLOVIR
     Dosage: 800 MILLIGRAM
     Route: 048
     Dates: start: 20230625
  5. HIBOR [Concomitant]
     Dosage: 3500 INTERNATIONAL UNIT
     Route: 058
     Dates: start: 20230625
  6. ALBUMIN HUMAN [Concomitant]
     Active Substance: ALBUMIN HUMAN
     Dosage: 40 GRAM
     Route: 042
     Dates: start: 20230625
  7. PANTOPRAZOLE SODIUM [Concomitant]
     Active Substance: PANTOPRAZOLE SODIUM
     Dosage: 40 MILLIGRAM
     Route: 048
     Dates: start: 20230626
  8. BUTYLSCOPOLAMINE [Concomitant]
     Active Substance: BUTYLSCOPOLAMINE
     Dosage: 10 MILLIGRAM
     Route: 042
     Dates: start: 20230627, end: 20230627
  9. LEVETIRACETAM [Concomitant]
     Active Substance: LEVETIRACETAM
     Dosage: 750 MILLIGRAM (Q12H) AND 1 GRAM  (Q12H)
     Route: 042
     Dates: start: 20230703, end: 20230710
  10. TOCILIZUMAB [Concomitant]
     Active Substance: TOCILIZUMAB
     Dosage: 600 MILLIGRAM (QD), 520-540 MILLIGRAM
     Route: 042
     Dates: start: 20230627, end: 20230703
  11. DEXAMETHASONE [Concomitant]
     Active Substance: DEXAMETHASONE
     Dosage: 4-20 MILLIGRAM
     Route: 042
     Dates: start: 20230625, end: 20230713
  12. PLATELETS [Concomitant]
     Active Substance: HUMAN PLATELET, ALLOGENIC
     Dosage: UNK
     Dates: start: 20230630
  13. MIDAZOLAM [Concomitant]
     Active Substance: MIDAZOLAM
     Dosage: 5 MILLIGRAM
     Route: 042
     Dates: start: 20230626, end: 20230627
  14. ONDANSETRON [Concomitant]
     Active Substance: ONDANSETRON
     Dosage: 5 MILLIGRAM
     Route: 042
     Dates: start: 20230626, end: 20230627
  15. ACETAMINOPHEN [Concomitant]
     Active Substance: ACETAMINOPHEN
     Dosage: 1 GRAM
     Route: 042
     Dates: start: 20230626, end: 20230629
  16. KETOROLAC TROMETHAMINE [Concomitant]
     Active Substance: KETOROLAC TROMETHAMINE
     Dosage: 15 MILLIGRAM
     Route: 042
     Dates: start: 20230627, end: 20230627
  17. NOREPINEPHRINE\NOREPINEPHRINE BITARTRATE [Concomitant]
     Active Substance: NOREPINEPHRINE\NOREPINEPHRINE BITARTRATE
     Dosage: 20 MILLIGRAM
     Route: 042
     Dates: start: 20230627, end: 20230629
  18. VANCOMYCIN [Concomitant]
     Active Substance: VANCOMYCIN
     Dosage: 1500 MILLIGRAM
     Route: 042
     Dates: start: 20230627, end: 20230627
  19. VASOPRESSIN [Concomitant]
     Active Substance: VASOPRESSIN
     Dosage: 40 INTERNATIONAL UNIT
     Route: 042
     Dates: start: 20230627, end: 20230628
  20. METAMIZOL [Concomitant]
     Active Substance: METAMIZOLE SODIUM
     Dosage: 2 GRAM
     Route: 042
     Dates: start: 20230626, end: 20230627
  21. PIPERACILLIN SODIUM\TAZOBACTAM SODIUM [Concomitant]
     Active Substance: PIPERACILLIN SODIUM\TAZOBACTAM SODIUM
     Dosage: 2-4GRAM
     Route: 042
     Dates: start: 20230626, end: 20230701

REACTIONS (1)
  - Immune effector cell-associated neurotoxicity syndrome [Recovered/Resolved]

NARRATIVE: CASE EVENT DATE: 20230704
